FAERS Safety Report 8625985-9 (Version None)
Quarter: 2012Q3

REPORT INFORMATION
  Report Type: 
  Country: None (occurrence: None)
  Receive Date: 20120827
  Receipt Date: 20120814
  Transmission Date: 20120928
  Serious: Yes (Hospitalization)
  Sender: FDA-Public Use
  Company Number: FR-VERTEX PHARMACEUTICAL INC.-000000000000001258

PATIENT
  Sex: Female
  Weight: 65 kg

DRUGS (4)
  1. PEGASYS [Suspect]
     Indication: HEPATITIS C
     Dosage: DOSAGE FORM: INJECTION
     Route: 058
     Dates: start: 20120601, end: 20120717
  2. COPEGUS [Suspect]
     Indication: HEPATITIS C
     Dosage: DOSAGE FORM: TABLETS
     Route: 048
     Dates: start: 20120601, end: 20120717
  3. INCIVEK [Suspect]
     Indication: HEPATITIS C
     Dosage: DOSAGE FORM: TABLET
     Route: 048
     Dates: start: 20120601, end: 20120715
  4. INCIVEK [Suspect]
     Dosage: DOSAGE FORM: TABLET
     Route: 048
     Dates: start: 20120601, end: 20120715

REACTIONS (4)
  - RASH MACULO-PAPULAR [None]
  - TOXIC SKIN ERUPTION [None]
  - MUCOSAL ULCERATION [None]
  - PURPURA [None]
